FAERS Safety Report 6642911-2 (Version None)
Quarter: 2010Q1

REPORT INFORMATION
  Report Type: 
  Country: None (occurrence: None)
  Receive Date: 20100319
  Receipt Date: 20100304
  Transmission Date: 20100710
  Serious: Yes (Other)
  Sender: FDA-Public Use
  Company Number: CA-JNJFOC-20100302949

PATIENT
  Age: 80 Year
  Sex: Female

DRUGS (3)
  1. REMINYL [Suspect]
     Indication: DRUG USE FOR UNKNOWN INDICATION
     Route: 065
  2. ACETYLSALICYLIC ACID SRT [Concomitant]
     Route: 065
  3. MEMANTINE HCL [Concomitant]
     Route: 065

REACTIONS (4)
  - BRADYCARDIA [None]
  - MEDICATION ERROR [None]
  - NAUSEA [None]
  - TRANSIENT ISCHAEMIC ATTACK [None]
